FAERS Safety Report 17234324 (Version 1)
Quarter: 2020Q1

REPORT INFORMATION
  Report Type: Spontaneous
  Country: US (occurrence: US)
  Receive Date: 20200106
  Receipt Date: 20200106
  Transmission Date: 20200409
  Serious: No
  Sender: FDA-Public Use
  Company Number: US-UCBSA-2014008294

PATIENT
  Age: 53 Year
  Sex: Female
  Weight: 175 kg

DRUGS (1)
  1. CIMZIA [Suspect]
     Active Substance: CERTOLIZUMAB PEGOL
     Indication: CROHN^S DISEASE
     Dosage: 400 MG, EV 2 WEEKS(QOW), AT WEEK 0, 2 AND 4
     Dates: start: 20140728, end: 20140728

REACTIONS (8)
  - Cough [Recovered/Resolved]
  - Chest pain [Unknown]
  - Nasal congestion [Unknown]
  - Lymphadenopathy [Unknown]
  - Oropharyngeal pain [Recovered/Resolved]
  - Epistaxis [Unknown]
  - Pollakiuria [Recovered/Resolved]
  - Swelling face [Recovered/Resolved]

NARRATIVE: CASE EVENT DATE: 2014
